FAERS Safety Report 25052355 (Version 11)
Quarter: 2025Q4

REPORT INFORMATION
  Report Type: Spontaneous
  Country: EU (occurrence: EU)
  Receive Date: 20250307
  Receipt Date: 20251209
  Transmission Date: 20260118
  Serious: Yes (Hospitalization, Other)
  Sender: NOVARTIS
  Company Number: EU-002147023-NVSC2025AT038539

PATIENT
  Age: 66 Year
  Sex: Female
  Weight: 80.4 kg

DRUGS (379)
  1. LAPATINIB [Suspect]
     Active Substance: LAPATINIB
     Indication: Breast cancer
     Dosage: 1250 MG, QD, MOST RECENT DOSE PRIOR TO THE EVENT LYMPH NODE METASTATIS AXILLA AND PORT A CATH INFECT
     Route: 048
     Dates: start: 20191002, end: 20200107
  2. LAPATINIB [Suspect]
     Active Substance: LAPATINIB
     Dosage: 1000 MG, QD
     Route: 065
     Dates: start: 20200108, end: 20200421
  3. VINORELBINE [Suspect]
     Active Substance: VINORELBINE TARTRATE
     Indication: HER2 positive breast cancer
     Dosage: 45 MG, Q3W
     Route: 042
     Dates: start: 20200422, end: 20200722
  4. FULVESTRANT [Suspect]
     Active Substance: FULVESTRANT
     Indication: Breast cancer metastatic
     Dosage: 500 MG, QW ((MOST RECENT DOSE PRIOR TO THE EVENT LYMPH NODE METASTATIS AXILLA AND PORT A CATH INFECT
     Route: 030
     Dates: start: 20171002, end: 20171115
  5. FULVESTRANT [Suspect]
     Active Substance: FULVESTRANT
     Indication: Breast cancer
     Dosage: 500 MG, QMO
     Route: 030
     Dates: start: 20171116, end: 20191001
  6. DOCETAXEL [Suspect]
     Active Substance: DOCETAXEL
     Indication: Breast cancer metastatic
     Dosage: 570 MG, Q3W (MOST RECENT DOSE PRIOR TO THE EVENTS: 09 JUN 2017)
     Route: 042
     Dates: start: 20170224, end: 20170317
  7. DOCETAXEL [Suspect]
     Active Substance: DOCETAXEL
     Indication: Breast cancer metastatic
     Dosage: 190 MG, Q3W (MOST RECENT DOSE PRIOR TO THE EVENTS: 09/JUN/2017)
     Route: 042
     Dates: start: 20170224, end: 20170317
  8. DOCETAXEL [Suspect]
     Active Substance: DOCETAXEL
     Dosage: 180 MG, Q3W
     Route: 042
     Dates: start: 20170609, end: 20170630
  9. DOCETAXEL [Suspect]
     Active Substance: DOCETAXEL
     Dosage: 549 MG, QW
     Route: 042
     Dates: start: 20170519, end: 20170519
  10. DOCETAXEL [Suspect]
     Active Substance: DOCETAXEL
     Dosage: 402.75 MG
     Route: 042
     Dates: start: 20210317, end: 20210428
  11. DOCETAXEL [Suspect]
     Active Substance: DOCETAXEL
     Dosage: 525 MG, QW
     Route: 065
     Dates: start: 20170410, end: 20170427
  12. DOCETAXEL [Suspect]
     Active Substance: DOCETAXEL
     Dosage: 134.25 MG, Q3W
     Route: 042
     Dates: start: 20210317, end: 20210428
  13. DOCETAXEL [Suspect]
     Active Substance: DOCETAXEL
     Dosage: 183 MG, QD (183 UNK)
     Route: 042
     Dates: start: 20170519, end: 20170519
  14. DOCETAXEL [Suspect]
     Active Substance: DOCETAXEL
     Dosage: 175 MG, EVERY 17 DAYS
     Route: 065
  15. DOCETAXEL [Suspect]
     Active Substance: DOCETAXEL
     Dosage: 175 MG
     Route: 065
     Dates: start: 20170410, end: 20170427
  16. DOCETAXEL [Suspect]
     Active Substance: DOCETAXEL
     Dosage: 540 MG, QW
     Route: 042
     Dates: start: 20170609, end: 20170630
  17. DOCETAXEL [Suspect]
     Active Substance: DOCETAXEL
     Dosage: 370 MG
     Route: 065
     Dates: start: 20170519, end: 20170519
  18. DOCETAXEL [Suspect]
     Active Substance: DOCETAXEL
     Dosage: 740 MG
     Route: 065
     Dates: start: 20170519, end: 20170519
  19. DOCETAXEL [Suspect]
     Active Substance: DOCETAXEL
     Dosage: 40.75 MG
     Route: 042
     Dates: start: 20210317, end: 20210428
  20. CAPECITABINE [Suspect]
     Active Substance: CAPECITABINE
     Indication: Breast cancer metastatic
     Dosage: 3500 MG, QD (3500 MG, QD ECENT DOSE PRIOR TO THE EVENT LYMPH NODE METASTATIS AXILLA AND PORT A CATH
     Route: 048
     Dates: start: 20191002, end: 20200107
  21. CAPECITABINE [Suspect]
     Active Substance: CAPECITABINE
     Dosage: 3000 MG, QD
     Route: 048
     Dates: start: 20200108, end: 20200421
  22. CAPECITABINE [Suspect]
     Active Substance: CAPECITABINE
     Dosage: 2000 MG (DAILY FOR 2 WEEKS THEN PAUSE FOR 1 WEEK)
     Route: 048
     Dates: start: 20201230, end: 20210203
  23. CAPECITABINE [Suspect]
     Active Substance: CAPECITABINE
     Dosage: 3500 MG, QD
     Route: 048
     Dates: start: 20210210, end: 20210224
  24. CAPECITABINE [Suspect]
     Active Substance: CAPECITABINE
     Dosage: 1 DOSAGE FORM
     Route: 065
  25. TYKERB [Suspect]
     Active Substance: LAPATINIB DITOSYLATE
     Indication: Breast cancer metastatic
     Dosage: 1250 MG, QD (MOST RECENT DOSE PRIOR TO THE EVENT LYMPH NODE METASTATIS AXILLA AND PORT A CATH INFECT
     Route: 048
     Dates: start: 20191002, end: 20200107
  26. TYKERB [Suspect]
     Active Substance: LAPATINIB DITOSYLATE
     Indication: Hormone receptor positive breast cancer
     Dosage: 1000 MG, QD
     Route: 048
     Dates: start: 20200108, end: 20200421
  27. DOXORUBICIN [Suspect]
     Active Substance: DOXORUBICIN
     Indication: Breast cancer metastatic
     Dosage: 104.4 MG, QD
     Route: 042
     Dates: start: 20210608, end: 20210608
  28. ACETAMINOPHEN [Suspect]
     Active Substance: ACETAMINOPHEN
     Indication: Pseudomonal sepsis
     Dosage: UNK
     Route: 065
     Dates: start: 20200506, end: 20210622
  29. ACETAMINOPHEN [Suspect]
     Active Substance: ACETAMINOPHEN
     Indication: Product used for unknown indication
     Dosage: UNK
     Route: 065
     Dates: start: 20200506
  30. BLEOMYCIN SULFATE [Suspect]
     Active Substance: BLEOMYCIN SULFATE
     Indication: Breast cancer metastatic
     Dosage: 26.85 MG, QD
     Route: 042
     Dates: start: 20200519, end: 20200519
  31. BLEOMYCIN SULFATE [Suspect]
     Active Substance: BLEOMYCIN SULFATE
     Dosage: 26.85 MG, QD
     Route: 042
     Dates: start: 20210105, end: 20210105
  32. BLEOMYCIN SULFATE [Suspect]
     Active Substance: BLEOMYCIN SULFATE
     Route: 065
  33. FAM-TRASTUZUMAB DERUXTECAN-NXKI [Suspect]
     Active Substance: FAM-TRASTUZUMAB DERUXTECAN-NXKI
     Indication: Breast cancer metastatic
     Dosage: UNK
     Route: 058
     Dates: start: 20200814, end: 20201015
  34. ADO-TRASTUZUMAB EMTANSINE [Suspect]
     Active Substance: ADO-TRASTUZUMAB EMTANSINE
     Indication: Breast cancer metastatic
     Dosage: MOST RECENT DOSE RECEIVED ON 810MG START DATE: 06/03/2019; END DATE: 09/09/2019,
     Route: 042
     Dates: start: 20190306, end: 20190909
  35. ADO-TRASTUZUMAB EMTANSINE [Suspect]
     Active Substance: ADO-TRASTUZUMAB EMTANSINE
     Indication: Breast cancer metastatic
  36. TRASTUZUMAB [Suspect]
     Active Substance: TRASTUZUMAB
     Indication: Breast cancer metastatic
     Dosage: 624 MILLIGRAM, QD/ MOST RECENT DOSE PRIOR TO THE EVENTS: 10/AUG/2017
     Route: 042
     Dates: start: 20170224, end: 20170224
  37. TRASTUZUMAB [Suspect]
     Active Substance: TRASTUZUMAB
     Indication: Breast cancer metastatic
     Dosage: UNK
     Route: 042
     Dates: start: 20170720, end: 20170720
  38. TRASTUZUMAB [Suspect]
     Active Substance: TRASTUZUMAB
     Dosage: 369 MG, TIW
     Route: 042
     Dates: start: 20170410, end: 20170427
  39. TRASTUZUMAB [Suspect]
     Active Substance: TRASTUZUMAB
     Dosage: 560 MG, Q3W
     Route: 042
     Dates: start: 20201230, end: 20210210
  40. TRASTUZUMAB [Suspect]
     Active Substance: TRASTUZUMAB
     Dosage: 432 MG, QD
     Route: 042
     Dates: start: 20170519, end: 20170519
  41. TRASTUZUMAB [Suspect]
     Active Substance: TRASTUZUMAB
     Dosage: 462 MG, Q3W
     Route: 042
     Dates: start: 20170810, end: 20190213
  42. TRASTUZUMAB [Suspect]
     Active Substance: TRASTUZUMAB
     Dosage: 414 MG, QD
     Route: 042
     Dates: start: 20170224, end: 20170630
  43. TRASTUZUMAB [Suspect]
     Active Substance: TRASTUZUMAB
     Dosage: 540 MG, Q3W
     Route: 042
     Dates: start: 20200422, end: 20200615
  44. TRASTUZUMAB [Suspect]
     Active Substance: TRASTUZUMAB
     Dosage: 468 MG QD
     Route: 042
     Dates: start: 20170720, end: 20170720
  45. TRASTUZUMAB [Suspect]
     Active Substance: TRASTUZUMAB
     Dosage: 408 MG, Q3W
     Route: 042
     Dates: start: 20210317, end: 20210428
  46. TRASTUZUMAB [Suspect]
     Active Substance: TRASTUZUMAB
     Dosage: UNK
     Route: 065
     Dates: start: 20200814, end: 20201015
  47. TRASTUZUMAB [Suspect]
     Active Substance: TRASTUZUMAB
     Dosage: 468 MG, QD
     Route: 065
     Dates: start: 20200317, end: 20200317
  48. TRASTUZUMAB [Suspect]
     Active Substance: TRASTUZUMAB
     Dosage: 414 MG, Q3W
     Route: 042
     Dates: start: 20170609, end: 20170630
  49. TRASTUZUMAB [Suspect]
     Active Substance: TRASTUZUMAB
     Dosage: 1242 MG, TIW
     Route: 042
     Dates: start: 20170609, end: 20170630
  50. TRASTUZUMAB [Suspect]
     Active Substance: TRASTUZUMAB
     Dosage: 1386 MG, TIW
     Route: 042
     Dates: start: 20170810, end: 20190213
  51. TRASTUZUMAB [Suspect]
     Active Substance: TRASTUZUMAB
     Dosage: 1526 MG, TIW
     Route: 042
     Dates: start: 20200422, end: 20200615
  52. TRASTUZUMAB [Suspect]
     Active Substance: TRASTUZUMAB
     Dosage: 1680 MG, TIW
     Route: 042
     Dates: start: 20201230, end: 20210210
  53. TRASTUZUMAB [Suspect]
     Active Substance: TRASTUZUMAB
     Dosage: 462 MG, TIW
     Route: 042
  54. TRASTUZUMAB [Suspect]
     Active Substance: TRASTUZUMAB
     Dosage: 432 MG, QD
     Route: 042
  55. TRASTUZUMAB [Suspect]
     Active Substance: TRASTUZUMAB
     Dosage: 414 MG, TIW
     Route: 042
  56. TRASTUZUMAB [Suspect]
     Active Substance: TRASTUZUMAB
     Dosage: 408 MG, TIW
     Route: 042
  57. TRASTUZUMAB [Suspect]
     Active Substance: TRASTUZUMAB
     Dosage: 390 MG, Q17D
     Route: 042
  58. TRASTUZUMAB [Suspect]
     Active Substance: TRASTUZUMAB
     Dosage: 390 MG
     Route: 042
     Dates: start: 20170410, end: 20170427
  59. TRASTUZUMAB [Suspect]
     Active Substance: TRASTUZUMAB
     Dosage: 624 MG, EVERY 1 DAY
     Route: 065
     Dates: start: 20170224
  60. TRASTUZUMAB [Suspect]
     Active Substance: TRASTUZUMAB
     Dosage: 468 MG/KG, QD
     Route: 065
     Dates: start: 20200317, end: 20200317
  61. TRASTUZUMAB [Suspect]
     Active Substance: TRASTUZUMAB
     Dosage: 390.000MG
     Route: 042
     Dates: start: 20170410, end: 20170427
  62. TRASTUZUMAB [Suspect]
     Active Substance: TRASTUZUMAB
     Dosage: 462.000MG Q3W
     Route: 042
     Dates: start: 20170810, end: 20190213
  63. TRASTUZUMAB [Suspect]
     Active Substance: TRASTUZUMAB
     Dosage: 624.000MG QD
     Route: 042
     Dates: start: 20170224, end: 20170224
  64. TRASTUZUMAB [Suspect]
     Active Substance: TRASTUZUMAB
     Dosage: 432.000MG QD
     Route: 042
     Dates: start: 20170519, end: 20170519
  65. TRASTUZUMAB [Suspect]
     Active Substance: TRASTUZUMAB
     Dosage: 540.000MG Q3W
     Route: 042
     Dates: start: 20200422, end: 20200615
  66. TRASTUZUMAB [Suspect]
     Active Substance: TRASTUZUMAB
     Dosage: 560.000MG Q3W
     Route: 042
     Dates: start: 20201230, end: 20210210
  67. TRASTUZUMAB [Suspect]
     Active Substance: TRASTUZUMAB
     Dosage: 414.000MG Q3W
     Route: 042
     Dates: start: 20170609, end: 20170630
  68. TRASTUZUMAB [Suspect]
     Active Substance: TRASTUZUMAB
     Dosage: 408.000MG Q3W
     Route: 042
     Dates: start: 20210317, end: 20210428
  69. TRASTUZUMAB [Suspect]
     Active Substance: TRASTUZUMAB
     Dosage: 468.000MG QD
     Route: 042
     Dates: start: 20170720, end: 20170720
  70. TRASTUZUMAB [Suspect]
     Active Substance: TRASTUZUMAB
     Route: 042
     Dates: start: 20200422, end: 20200615
  71. TUCATINIB [Suspect]
     Active Substance: TUCATINIB
     Indication: Breast cancer metastatic
     Dosage: 300 MG, BID
     Route: 048
     Dates: start: 20201230, end: 20210210
  72. TUCATINIB [Suspect]
     Active Substance: TUCATINIB
     Indication: HER2 positive breast cancer
  73. BLEOMYCIN [Suspect]
     Active Substance: BLEOMYCIN SULFATE
     Indication: HER2 positive breast cancer
     Dosage: START DATE: 05/01/2021; END DATE: 05/01/2021, START DATE: 19/05/2020; END DATE: 19/05/2020
     Route: 042
     Dates: start: 20200519, end: 20200519
  74. BLEOMYCIN [Suspect]
     Active Substance: BLEOMYCIN SULFATE
     Indication: Breast cancer metastatic
     Dosage: 26.85 MILLIGRAM, QD
     Route: 042
     Dates: start: 20210105, end: 20210105
  75. BLEOMYCIN [Suspect]
     Active Substance: BLEOMYCIN SULFATE
     Indication: Breast cancer metastatic
     Dosage: 26.85 MG, QD
     Route: 042
  76. BLEOMYCIN [Suspect]
     Active Substance: BLEOMYCIN SULFATE
     Dosage: 1 DOSAGE FORM, QD
     Route: 042
     Dates: start: 20210105, end: 20210105
  77. XELODA [Suspect]
     Active Substance: CAPECITABINE
     Indication: Breast cancer metastatic
     Dosage: 3500 MG, QD (MOST RECENT DOSE EVENT PORT A CATH INFECTION:  PRIOR TO THE 08/JAN/2020)
     Route: 048
     Dates: start: 20191002, end: 20200107
  78. XELODA [Suspect]
     Active Substance: CAPECITABINE
     Indication: Breast cancer metastatic
     Dosage: 3000 MILLIGRAM, QD
     Route: 048
     Dates: start: 20200108, end: 20200421
  79. XELODA [Suspect]
     Active Substance: CAPECITABINE
     Indication: Breast cancer metastatic
     Dosage: 3500 MILLIGRAM, QD
     Route: 048
     Dates: start: 20210210, end: 20210224
  80. XELODA [Suspect]
     Active Substance: CAPECITABINE
     Dosage: DAILY FOR 2 WEEKS THEN PAUSE FOR 1 WEEK
     Route: 048
     Dates: start: 20201230, end: 20210203
  81. PERTUZUMAB [Suspect]
     Active Substance: PERTUZUMAB
     Indication: Breast cancer metastatic
     Dosage: 840 MG, QD (MOST RECENT DOSE PRIOR TO THE EVENT WORSENING OF BRAIN METASTASES: 17/MAR/2017 MOST RECE
     Route: 042
     Dates: start: 20170224, end: 20170224
  82. PERTUZUMAB [Suspect]
     Active Substance: PERTUZUMAB
     Indication: HER2 positive breast cancer
     Dosage: 840 MG, QD
     Route: 042
     Dates: start: 20170417, end: 20210428
  83. PERTUZUMAB [Suspect]
     Active Substance: PERTUZUMAB
     Indication: HER2 positive breast cancer
     Dosage: 840 MG, QD
     Route: 042
     Dates: start: 20200422, end: 20200615
  84. PERTUZUMAB [Suspect]
     Active Substance: PERTUZUMAB
     Indication: Breast cancer metastatic
     Dosage: 420 MG, QD
     Route: 042
     Dates: start: 20170317, end: 20190213
  85. PERTUZUMAB [Suspect]
     Active Substance: PERTUZUMAB
     Dosage: 840 MG, QD
     Route: 042
     Dates: start: 20210317, end: 20210428
  86. PERTUZUMAB [Suspect]
     Active Substance: PERTUZUMAB
     Dosage: 840 MG, QD
     Route: 065
     Dates: start: 20170214, end: 20210428
  87. NAVELBINE [Suspect]
     Active Substance: VINORELBINE TARTRATE
     Indication: Breast cancer metastatic
     Dosage: 135 MG, QW (45.000MG TIW)
     Route: 042
     Dates: start: 20200422, end: 20200722
  88. NAVELBINE [Suspect]
     Active Substance: VINORELBINE TARTRATE
     Indication: HER2 positive breast cancer
     Dosage: START DATE: 22/04/2020; END DATE: 22/07/2020
     Route: 042
     Dates: start: 20200422, end: 20200722
  89. NAVELBINE [Suspect]
     Active Substance: VINORELBINE TARTRATE
     Dosage: 45 MG, Q3W
     Route: 042
     Dates: start: 20200422, end: 20200722
  90. DENOSUMAB [Suspect]
     Active Substance: DENOSUMAB
     Indication: Breast cancer metastatic
     Dosage: 120 MG, Q4W
     Route: 042
     Dates: start: 20201230, end: 20210210
  91. DENOSUMAB [Suspect]
     Active Substance: DENOSUMAB
     Indication: Breast cancer metastatic
     Dosage: 120 MG, ONCE EVERY 4 WK
     Route: 042
     Dates: start: 20170202
  92. DENOSUMAB [Suspect]
     Active Substance: DENOSUMAB
     Indication: Breast cancer metastatic
  93. TUCATINIB [Suspect]
     Active Substance: TUCATINIB
     Indication: Breast cancer metastatic
     Dosage: 300 MILLIGRAM, UNK
     Route: 048
     Dates: start: 20201230, end: 20210210
  94. TUCATINIB [Suspect]
     Active Substance: TUCATINIB
     Indication: Breast cancer metastatic
  95. TUCATINIB [Suspect]
     Active Substance: TUCATINIB
     Indication: Breast cancer metastatic
  96. TUCATINIB [Suspect]
     Active Substance: TUCATINIB
     Indication: Breast cancer metastatic
  97. PEGFILGRASTIM [Suspect]
     Active Substance: PEGFILGRASTIM
     Indication: Product used for unknown indication
     Dosage: UNK
     Route: 065
     Dates: start: 20210610, end: 20210610
  98. KADCYLA [Suspect]
     Active Substance: ADO-TRASTUZUMAB EMTANSINE
     Indication: Breast cancer metastatic
     Dosage: 270 MILLIGRAM, Q3W
     Route: 042
     Dates: start: 20190306, end: 20190909
  99. KADCYLA [Suspect]
     Active Substance: ADO-TRASTUZUMAB EMTANSINE
     Indication: HER2 positive breast cancer
     Dosage: 190 MG, Q3W (190 MILLIGRAM, Q3WK MOSTRECENT DOSE PRIOR TO THE EVENTS: 09/JUN/2017)
     Route: 042
     Dates: start: 20170224, end: 20170317
  100. KADCYLA [Suspect]
     Active Substance: ADO-TRASTUZUMAB EMTANSINE
     Dosage: 370 MG, QD
     Route: 042
     Dates: start: 20170519, end: 20170519
  101. FASLODEX [Suspect]
     Active Substance: FULVESTRANT
     Indication: Breast cancer
     Dosage: MOST RECENT DOSE PRIOR TO THE EVENT LYMPH NODE METASTATIS AXILLA AND PORT A CATH INFECTION: 16/NOV/2
     Route: 058
     Dates: start: 20171002, end: 20171115
  102. FASLODEX [Suspect]
     Active Substance: FULVESTRANT
     Indication: Breast cancer metastatic
     Dosage: START DATE: 16/11/2017; END DATE: 01/10/2019
     Route: 058
     Dates: start: 20171116, end: 20191001
  103. FASLODEX [Suspect]
     Active Substance: FULVESTRANT
     Indication: Breast cancer metastatic
  104. PERJETA [Suspect]
     Active Substance: PERTUZUMAB
     Indication: Breast cancer metastatic
     Dosage: 840 MG, QD
     Route: 042
     Dates: start: 20170224, end: 20170224
  105. PERJETA [Suspect]
     Active Substance: PERTUZUMAB
     Indication: Breast cancer metastatic
     Dosage: 840 MG, QD
     Route: 042
     Dates: start: 20200422, end: 20200615
  106. PERJETA [Suspect]
     Active Substance: PERTUZUMAB
     Dosage: 840 MG, QD
     Route: 042
     Dates: start: 20210317, end: 20210428
  107. DOXIL [Suspect]
     Active Substance: DOXORUBICIN HYDROCHLORIDE
     Indication: Breast cancer metastatic
     Dosage: 104.4 MILLIGRAM, QD
     Route: 042
     Dates: start: 20210608, end: 20210608
  108. DOXIL [Suspect]
     Active Substance: DOXORUBICIN HYDROCHLORIDE
     Indication: HER2 positive breast cancer
  109. ADRIACIN [Suspect]
     Active Substance: DOXORUBICIN HYDROCHLORIDE
     Indication: Breast cancer metastatic
     Dosage: 104.4 MG, QD
     Route: 065
     Dates: start: 20210608, end: 20210608
  110. ENHERTU [Suspect]
     Active Substance: FAM-TRASTUZUMAB DERUXTECAN-NXKI
     Indication: Breast cancer metastatic
     Dosage: 624 MG, QD (624 MG, QD (MOST RECENT DOSE PRIOR TO THE EVENTS: 10/AUG/2017 ))
     Route: 042
     Dates: start: 20200814, end: 20201015
  111. ENHERTU [Suspect]
     Active Substance: FAM-TRASTUZUMAB DERUXTECAN-NXKI
     Indication: Hormone receptor positive HER2 negative breast cancer
  112. CARBOXYMETHYLCELLULOSE SODIUM [Suspect]
     Active Substance: CARBOXYMETHYLCELLULOSE SODIUM
     Indication: Product used for unknown indication
     Dosage: UNK
     Route: 065
  113. XGEVA [Concomitant]
     Active Substance: DENOSUMAB
     Indication: Product used for unknown indication
     Dosage: UNK
     Route: 065
     Dates: start: 20170202
  114. XGEVA [Concomitant]
     Active Substance: DENOSUMAB
     Dosage: 120 MG, Q4W
     Route: 042
     Dates: start: 20201230, end: 20210210
  115. XGEVA [Concomitant]
     Active Substance: DENOSUMAB
     Dosage: 120 MG, Q4W
     Route: 042
     Dates: start: 20170202, end: 20210521
  116. Paspertin [Concomitant]
     Indication: Product used for unknown indication
     Dosage: UNK
     Route: 065
     Dates: start: 20200506, end: 20201212
  117. Paspertin [Concomitant]
     Indication: Gastrointestinal disorder
     Dosage: UNK
     Route: 065
     Dates: start: 20210608, end: 20210610
  118. Paspertin [Concomitant]
     Dosage: UNK
     Route: 065
     Dates: start: 20210611, end: 20210623
  119. ZOFRAN [Concomitant]
     Active Substance: ONDANSETRON HYDROCHLORIDE
     Indication: Gastrointestinal disorder
     Dosage: 8 MG
     Route: 048
     Dates: start: 20170329, end: 20170809
  120. ZOFRAN [Concomitant]
     Active Substance: ONDANSETRON HYDROCHLORIDE
     Dosage: UNK
     Route: 065
     Dates: start: 20210611, end: 20210612
  121. ZOFRAN [Concomitant]
     Active Substance: ONDANSETRON HYDROCHLORIDE
     Dosage: UNK
     Route: 065
     Dates: start: 20210612, end: 20210616
  122. ZOFRAN [Concomitant]
     Active Substance: ONDANSETRON HYDROCHLORIDE
     Dosage: UNK
     Route: 065
     Dates: start: 20200506, end: 20201215
  123. ZOFRAN [Concomitant]
     Active Substance: ONDANSETRON HYDROCHLORIDE
     Dosage: UNK
     Route: 065
     Dates: start: 20210608, end: 20210610
  124. ZOFRAN [Concomitant]
     Active Substance: ONDANSETRON HYDROCHLORIDE
     Dosage: UNK
     Route: 065
     Dates: start: 20210611, end: 20210616
  125. MORPHINE [Concomitant]
     Active Substance: MORPHINE
     Indication: Dyspnoea
     Dosage: UNK
     Route: 065
     Dates: start: 20210521, end: 20210616
  126. MORPHINE [Concomitant]
     Active Substance: MORPHINE
     Indication: Dyspnoea
     Dosage: UNK
     Route: 065
     Dates: start: 20210616, end: 20210623
  127. Motrim [Concomitant]
     Indication: Product used for unknown indication
     Dosage: 200 MG
     Route: 048
     Dates: start: 20190619, end: 20190623
  128. Motrim [Concomitant]
     Dosage: UNK
     Route: 065
  129. Motrim [Concomitant]
     Dosage: UNK
     Route: 065
  130. Motrim [Concomitant]
     Dosage: UNK
     Route: 065
  131. Motrim [Concomitant]
     Dosage: 200 MG
     Route: 048
     Dates: start: 20190619, end: 20190623
  132. Motrim [Concomitant]
     Dosage: UNK
     Route: 065
  133. Motrim [Concomitant]
     Dosage: UNK
     Route: 065
  134. Motrim [Concomitant]
     Dosage: UNK
     Route: 065
  135. Motrim [Concomitant]
     Dosage: UNK
     Route: 065
  136. TAZOBACTAM [Concomitant]
     Active Substance: TAZOBACTAM
     Indication: Streptococcal sepsis
     Dosage: 4.5 G
     Route: 042
     Dates: start: 20170708, end: 20170710
  137. TAZOBACTAM [Concomitant]
     Active Substance: TAZOBACTAM
     Dosage: UNK
     Route: 065
     Dates: start: 20200423, end: 20200504
  138. TAZOBACTAM [Concomitant]
     Active Substance: TAZOBACTAM
     Dosage: 4.5 G
     Route: 042
     Dates: start: 20170706, end: 20170710
  139. TAZOBACTAM [Concomitant]
     Active Substance: TAZOBACTAM
     Dosage: UNK
     Route: 065
  140. TAZOBACTAM [Concomitant]
     Active Substance: TAZOBACTAM
     Dosage: UNK
     Route: 065
  141. ACETAMINOPHEN [Concomitant]
     Active Substance: ACETAMINOPHEN
     Indication: Pseudomonal sepsis
     Dosage: UNK
     Route: 065
     Dates: start: 20200506, end: 20201215
  142. ACETAMINOPHEN [Concomitant]
     Active Substance: ACETAMINOPHEN
     Dosage: UNK
     Route: 065
     Dates: start: 20210622, end: 20210622
  143. ACETAMINOPHEN [Concomitant]
     Active Substance: ACETAMINOPHEN
     Dosage: UNK
     Route: 065
     Dates: start: 20200610, end: 20200616
  144. KCL [Concomitant]
     Active Substance: POTASSIUM CHLORIDE
     Indication: Product used for unknown indication
     Dosage: UNK
     Route: 065
     Dates: start: 20170429
  145. KCL [Concomitant]
     Active Substance: POTASSIUM CHLORIDE
     Dosage: 600 MG
     Route: 048
     Dates: start: 20170429, end: 20190305
  146. ACETAMINOPHEN [Concomitant]
     Active Substance: ACETAMINOPHEN
     Indication: Pseudomonal sepsis
     Dosage: UNK
     Route: 065
     Dates: start: 20200506
  147. ACETAMINOPHEN [Concomitant]
     Active Substance: ACETAMINOPHEN
     Dosage: UNK
     Route: 065
     Dates: start: 20200506, end: 20201215
  148. ACETAMINOPHEN [Concomitant]
     Active Substance: ACETAMINOPHEN
     Dosage: UNK, (ONGOING = NOT CHECKED)
     Route: 065
     Dates: start: 20210622, end: 20210622
  149. ACETAMINOPHEN [Concomitant]
     Active Substance: ACETAMINOPHEN
     Dosage: UNK
     Route: 065
     Dates: start: 20200506, end: 20210622
  150. ACETAMINOPHEN [Concomitant]
     Active Substance: ACETAMINOPHEN
     Dosage: UNK
     Route: 065
     Dates: end: 20210622
  151. FUROSEMIDE [Concomitant]
     Active Substance: FUROSEMIDE
     Indication: Product used for unknown indication
     Dosage: UNK
     Route: 065
     Dates: start: 20170810, end: 20171213
  152. EDOXABAN TOSYLATE [Concomitant]
     Active Substance: EDOXABAN TOSYLATE
     Indication: Product used for unknown indication
     Dosage: UNK
     Route: 065
     Dates: start: 20191120, end: 20200608
  153. EDOXABAN TOSYLATE [Concomitant]
     Active Substance: EDOXABAN TOSYLATE
     Dosage: UNK
     Route: 065
     Dates: start: 20200613, end: 20210611
  154. EDOXABAN TOSYLATE [Concomitant]
     Active Substance: EDOXABAN TOSYLATE
     Dosage: UNK
     Route: 065
  155. EDOXABAN TOSYLATE [Concomitant]
     Active Substance: EDOXABAN TOSYLATE
     Dosage: UNK
     Route: 065
  156. PREGABALIN [Concomitant]
     Active Substance: PREGABALIN
     Indication: Product used for unknown indication
     Dosage: 6775 MG
     Route: 065
     Dates: start: 20190821, end: 20210616
  157. PREGABALIN [Concomitant]
     Active Substance: PREGABALIN
     Dosage: UNK
     Route: 065
     Dates: start: 20190821, end: 20210616
  158. PREGABALIN [Concomitant]
     Active Substance: PREGABALIN
     Dosage: 6775 MG, ONGOING = NOT CHECKED
     Route: 065
     Dates: start: 20190821, end: 20210616
  159. PREGABALIN [Concomitant]
     Active Substance: PREGABALIN
     Dosage: 25 MG, QD
     Route: 065
     Dates: start: 20170428, end: 20180123
  160. PREGABALIN [Concomitant]
     Active Substance: PREGABALIN
     Dosage: UNK
     Route: 065
  161. PREGABALIN [Concomitant]
     Active Substance: PREGABALIN
     Dosage: UNK
     Route: 065
  162. PANTOPRAZOLE SODIUM [Concomitant]
     Active Substance: PANTOPRAZOLE SODIUM
     Indication: Product used for unknown indication
     Dosage: UNK
     Route: 048
     Dates: start: 20170722, end: 20180327
  163. PANTOPRAZOLE SODIUM [Concomitant]
     Active Substance: PANTOPRAZOLE SODIUM
     Indication: Gastrointestinal disorder
     Dosage: UNK
     Route: 048
     Dates: start: 20200506, end: 20200519
  164. PANTOPRAZOLE SODIUM [Concomitant]
     Active Substance: PANTOPRAZOLE SODIUM
     Dosage: 40 MG, QD
     Route: 048
     Dates: start: 20170721, end: 20180327
  165. PANTOPRAZOLE SODIUM [Concomitant]
     Active Substance: PANTOPRAZOLE SODIUM
     Dosage: UNK
     Route: 048
     Dates: start: 20210317, end: 20210607
  166. PANTOPRAZOLE SODIUM [Concomitant]
     Active Substance: PANTOPRAZOLE SODIUM
     Dosage: UNK
     Route: 048
     Dates: start: 20210608, end: 20210610
  167. PANTOPRAZOLE SODIUM [Concomitant]
     Active Substance: PANTOPRAZOLE SODIUM
     Dosage: UNK
     Route: 048
     Dates: start: 20210618, end: 20210623
  168. Novalgin [Concomitant]
     Indication: Product used for unknown indication
     Dosage: 1 DOSAGE FORM
     Route: 065
     Dates: start: 20170329, end: 20180807
  169. Novalgin [Concomitant]
     Dosage: UNK
     Route: 048
     Dates: start: 20210608, end: 20210612
  170. Novalgin [Concomitant]
     Dosage: UNK
     Route: 048
     Dates: start: 20210618, end: 20210618
  171. LOVENOX [Concomitant]
     Active Substance: ENOXAPARIN SODIUM
     Indication: Product used for unknown indication
     Dosage: UNK
     Route: 065
     Dates: start: 20170224, end: 20171130
  172. LOVENOX [Concomitant]
     Active Substance: ENOXAPARIN SODIUM
     Dosage: 40 MG, QD
     Route: 065
     Dates: start: 20170224, end: 20171130
  173. EMEND [Concomitant]
     Active Substance: APREPITANT
     Indication: Product used for unknown indication
     Dosage: UNK (EMEND TRIFOLD  )
     Route: 065
     Dates: start: 20200428, end: 20200430
  174. DEXAMETHASONE [Concomitant]
     Active Substance: DEXAMETHASONE
     Indication: Brain oedema
     Dosage: 40 MG
     Route: 065
     Dates: start: 20171004, end: 20171006
  175. DEXAMETHASONE [Concomitant]
     Active Substance: DEXAMETHASONE
     Indication: Product used for unknown indication
     Dosage: UNK
     Route: 065
     Dates: start: 20171007, end: 20171008
  176. DEXAMETHASONE [Concomitant]
     Active Substance: DEXAMETHASONE
     Indication: Product used for unknown indication
     Dosage: UNK
     Route: 065
     Dates: start: 20200422, end: 20200505
  177. DEXAMETHASONE [Concomitant]
     Active Substance: DEXAMETHASONE
     Dosage: UNK
     Route: 065
     Dates: start: 20200609, end: 20200609
  178. DEXAMETHASONE [Concomitant]
     Active Substance: DEXAMETHASONE
     Dosage: UNK
     Route: 065
     Dates: start: 20210614, end: 20210623
  179. DEXAMETHASONE [Concomitant]
     Active Substance: DEXAMETHASONE
     Dosage: UNK
     Route: 065
     Dates: start: 20170104, end: 20170106
  180. DEXAMETHASONE [Concomitant]
     Active Substance: DEXAMETHASONE
     Dosage: UNK
     Route: 065
     Dates: start: 20170107, end: 20170108
  181. DEXAMETHASONE [Concomitant]
     Active Substance: DEXAMETHASONE
     Dosage: UNK
     Route: 065
     Dates: start: 20170104, end: 20170106
  182. DEXAMETHASONE [Concomitant]
     Active Substance: DEXAMETHASONE
     Dosage: UNK
     Route: 065
     Dates: start: 20171004, end: 20171006
  183. DEXAMETHASONE [Concomitant]
     Active Substance: DEXAMETHASONE
     Dosage: UNK
     Route: 065
     Dates: start: 20170104, end: 20170106
  184. DEXAMETHASONE [Concomitant]
     Active Substance: DEXAMETHASONE
     Dosage: UNK
     Route: 065
     Dates: start: 20170104, end: 20170106
  185. DEXAMETHASONE [Concomitant]
     Active Substance: DEXAMETHASONE
     Dosage: UNK
     Route: 065
     Dates: start: 20170104, end: 20170106
  186. DEXAMETHASONE [Concomitant]
     Active Substance: DEXAMETHASONE
     Dosage: UNK
     Route: 065
     Dates: start: 20170107, end: 20170108
  187. DEXAMETHASONE [Concomitant]
     Active Substance: DEXAMETHASONE
     Dosage: UNK
     Route: 065
     Dates: start: 20170107, end: 20170108
  188. DEXAMETHASONE [Concomitant]
     Active Substance: DEXAMETHASONE
     Dosage: UNK
     Route: 065
     Dates: start: 20170107, end: 20170108
  189. DEXAMETHASONE [Concomitant]
     Active Substance: DEXAMETHASONE
     Dosage: UNK
     Route: 065
     Dates: start: 20171004, end: 20171006
  190. DEXAMETHASONE [Concomitant]
     Active Substance: DEXAMETHASONE
     Dosage: UNK
     Route: 065
     Dates: start: 20171004, end: 20171006
  191. DEXAMETHASONE [Concomitant]
     Active Substance: DEXAMETHASONE
     Dosage: UNK
     Route: 065
     Dates: start: 20171004, end: 20171006
  192. DEXAMETHASONE [Concomitant]
     Active Substance: DEXAMETHASONE
     Dosage: UNK
     Route: 065
  193. DEXAMETHASONE [Concomitant]
     Active Substance: DEXAMETHASONE
     Dosage: UNK
     Route: 065
  194. DEXAMETHASONE [Concomitant]
     Active Substance: DEXAMETHASONE
     Dosage: UNK
     Route: 065
  195. DEXAMETHASONE [Concomitant]
     Active Substance: DEXAMETHASONE
     Dosage: UNK
     Route: 065
  196. Oleovit [Concomitant]
     Indication: Product used for unknown indication
     Dosage: 30 DROP, ONCE EVERY 1 WK,1/12 MILLILITRE
     Route: 048
     Dates: start: 20170329, end: 20210615
  197. LEVOFLOXACIN [Concomitant]
     Active Substance: LEVOFLOXACIN
     Indication: Product used for unknown indication
     Dosage: UNK
     Route: 065
     Dates: start: 20200506, end: 20200512
  198. LEVOFLOXACIN [Concomitant]
     Active Substance: LEVOFLOXACIN
     Dosage: UNK
     Route: 065
  199. FENTANYL [Concomitant]
     Active Substance: FENTANYL
     Indication: Product used for unknown indication
     Dosage: UNK
     Route: 062
     Dates: start: 20200515
  200. FENTANYL [Concomitant]
     Active Substance: FENTANYL
     Dosage: UNK, BID (O.5 DAY)
     Route: 065
  201. FENTANYL [Concomitant]
     Active Substance: FENTANYL
     Dosage: UNK
     Route: 065
     Dates: start: 20200515
  202. FENTANYL [Concomitant]
     Active Substance: FENTANYL
     Dosage: UNK
     Route: 065
  203. FENTANYL [Concomitant]
     Active Substance: FENTANYL
     Dosage: UNK
     Route: 065
  204. EUTHYROX [Concomitant]
     Active Substance: LEVOTHYROXINE SODIUM
     Indication: Product used for unknown indication
     Dosage: UNK
     Route: 065
  205. EUTHYROX [Concomitant]
     Active Substance: LEVOTHYROXINE SODIUM
     Dosage: UNK
     Route: 065
     Dates: start: 20170303, end: 20210615
  206. EUTHYROX [Concomitant]
     Active Substance: LEVOTHYROXINE SODIUM
     Dosage: 75 UG, QD
     Route: 048
     Dates: start: 20170303, end: 20210615
  207. EUTHYROX [Concomitant]
     Active Substance: LEVOTHYROXINE SODIUM
     Dosage: UNK
     Route: 065
  208. Leukichtan [Concomitant]
     Indication: Product used for unknown indication
     Dosage: UNK
     Route: 065
     Dates: start: 20200430, end: 20200515
  209. Leukichtan [Concomitant]
     Indication: Product used for unknown indication
     Dosage: 1 DOSAGE FORM, AS NEEDED
     Route: 065
     Dates: start: 20200430, end: 20200515
  210. Leukichtan [Concomitant]
     Dosage: 1 DOSAGE FORM, AS NEEDED
     Route: 065
     Dates: start: 20200430, end: 20200515
  211. Kalioral [Concomitant]
     Indication: Product used for unknown indication
     Dosage: UNK
     Route: 048
     Dates: start: 20200427, end: 20200428
  212. Kalioral [Concomitant]
     Indication: Product used for unknown indication
     Dosage: UNK
     Route: 065
     Dates: start: 20200608, end: 20200609
  213. Scottopect [Concomitant]
     Indication: Cough
     Dosage: UNK
     Route: 065
     Dates: start: 20210611, end: 20210613
  214. Scottopect [Concomitant]
     Dosage: UNK
     Route: 065
  215. Scottopect [Concomitant]
     Dosage: UNK
     Route: 065
  216. POLYETHYLENE GLYCOL 3350\POTASSIUM CHLORIDE\SODIUM BICARBONATE\SODIUM [Concomitant]
     Active Substance: POLYETHYLENE GLYCOL 3350\POTASSIUM CHLORIDE\SODIUM BICARBONATE\SODIUM CHLORIDE
     Indication: Product used for unknown indication
     Dosage: UNK
     Route: 065
  217. POLYETHYLENE GLYCOL 3350\POTASSIUM CHLORIDE\SODIUM BICARBONATE\SODIUM [Concomitant]
     Active Substance: POLYETHYLENE GLYCOL 3350\POTASSIUM CHLORIDE\SODIUM BICARBONATE\SODIUM CHLORIDE
     Indication: Product used for unknown indication
     Dosage: UNK
     Route: 065
  218. POLYETHYLENE GLYCOL 3350\POTASSIUM CHLORIDE\SODIUM BICARBONATE\SODIUM [Concomitant]
     Active Substance: POLYETHYLENE GLYCOL 3350\POTASSIUM CHLORIDE\SODIUM BICARBONATE\SODIUM CHLORIDE
     Dosage: UNK
     Route: 065
     Dates: start: 20210608, end: 20210616
  219. POLYETHYLENE GLYCOL 3350\POTASSIUM CHLORIDE\SODIUM BICARBONATE\SODIUM [Concomitant]
     Active Substance: POLYETHYLENE GLYCOL 3350\POTASSIUM CHLORIDE\SODIUM BICARBONATE\SODIUM CHLORIDE
     Dosage: UNK
     Route: 048
     Dates: start: 20170709, end: 20170709
  220. LACTULOSE [Concomitant]
     Active Substance: LACTULOSE
     Indication: Product used for unknown indication
     Dosage: UNK
     Route: 065
  221. LACTULOSE [Concomitant]
     Active Substance: LACTULOSE
     Dosage: UNK
     Route: 065
  222. LACTULOSE [Concomitant]
     Active Substance: LACTULOSE
     Dosage: UNK
     Route: 065
  223. LACTULOSE [Concomitant]
     Active Substance: LACTULOSE
     Dosage: UNK
     Route: 065
  224. LACTULOSE [Concomitant]
     Active Substance: LACTULOSE
     Dosage: UNK
     Route: 065
  225. LACTULOSE [Concomitant]
     Active Substance: LACTULOSE
     Dosage: UNK
     Route: 065
  226. LACTULOSE [Concomitant]
     Active Substance: LACTULOSE
     Dosage: UNK
     Route: 065
  227. LACTULOSE [Concomitant]
     Active Substance: LACTULOSE
     Dosage: UNK
     Route: 065
  228. LACTULOSE [Concomitant]
     Active Substance: LACTULOSE
     Dosage: UNK
     Route: 065
  229. LACTULOSE [Concomitant]
     Active Substance: LACTULOSE
     Dosage: UNK
     Route: 065
  230. LACTULOSE [Concomitant]
     Active Substance: LACTULOSE
     Dosage: UNK
     Route: 065
  231. HYDROMORPHONE HYDROCHLORIDE [Concomitant]
     Active Substance: HYDROMORPHONE HYDROCHLORIDE
     Indication: Product used for unknown indication
     Dosage: UNK
     Route: 065
  232. HYDROMORPHONE HYDROCHLORIDE [Concomitant]
     Active Substance: HYDROMORPHONE HYDROCHLORIDE
     Dosage: UNK
     Route: 065
     Dates: start: 20210611, end: 20210615
  233. HYDROMORPHONE HYDROCHLORIDE [Concomitant]
     Active Substance: HYDROMORPHONE HYDROCHLORIDE
     Dosage: UNK
     Route: 065
  234. HYDROMORPHONE HYDROCHLORIDE [Concomitant]
     Active Substance: HYDROMORPHONE HYDROCHLORIDE
     Dosage: UNK
     Route: 065
  235. ONDANSETRON [Concomitant]
     Active Substance: ONDANSETRON
     Indication: Gastrointestinal disorder
     Dosage: UNK (ONGOING = NOT CHECKED)
     Route: 065
     Dates: start: 20210608, end: 20210610
  236. ONDANSETRON [Concomitant]
     Active Substance: ONDANSETRON
     Dosage: UNK (ONGOING = NOT CHECKED)
     Route: 065
     Dates: start: 20210608, end: 20210610
  237. ONDANSETRON [Concomitant]
     Active Substance: ONDANSETRON
     Dosage: UNK (ONGOING = NOT CHECKED)
     Route: 065
     Dates: start: 20210608, end: 20210610
  238. DRONABINOL [Concomitant]
     Active Substance: DRONABINOL
     Indication: Product used for unknown indication
     Dosage: UNK (ONGOING = NOT CHECKED)
     Route: 065
     Dates: start: 20210608, end: 20210612
  239. DRONABINOL [Concomitant]
     Active Substance: DRONABINOL
     Indication: Gastrointestinal disorder
     Dosage: UNK
     Route: 065
  240. VITAMIN C [Concomitant]
     Active Substance: ASCORBIC ACID
     Indication: Gastrointestinal disorder
     Dosage: UNK
     Route: 065
     Dates: start: 20210611, end: 20210614
  241. ZIEXTENZO [Concomitant]
     Active Substance: PEGFILGRASTIM-BMEZ
     Indication: Product used for unknown indication
     Dosage: ONGOING = NOT CHECKED
     Route: 065
     Dates: start: 20210610, end: 20210610
  242. Ponveridol [Concomitant]
     Indication: Gastrointestinal disorder
     Dosage: ONGOING = NOT CHECKED
     Route: 065
     Dates: start: 20210618, end: 20210623
  243. Ponveridol [Concomitant]
     Dosage: UNK
     Route: 065
  244. Ponveridol [Concomitant]
     Dosage: UNK
     Route: 065
  245. Paracodin [Concomitant]
     Indication: Cough
     Dosage: UNK
     Route: 065
     Dates: start: 20210428, end: 20210615
  246. Paracodin [Concomitant]
     Dosage: UNK
     Route: 065
     Dates: start: 20210608, end: 20210610
  247. Paracodin [Concomitant]
     Dosage: 20 GTT DROPS
     Route: 065
     Dates: start: 20170708, end: 20170709
  248. Paracodin [Concomitant]
     Dosage: 20 GTT DROPS
     Route: 065
     Dates: start: 20210428, end: 20210615
  249. DROPERIDOL [Concomitant]
     Active Substance: DROPERIDOL
     Indication: Gastrointestinal disorder
     Dosage: UNK
     Route: 065
     Dates: start: 20210612, end: 20210617
  250. DROPERIDOL [Concomitant]
     Active Substance: DROPERIDOL
     Dosage: UNK
     Route: 065
     Dates: start: 20210612, end: 20210617
  251. DROPERIDOL [Concomitant]
     Active Substance: DROPERIDOL
     Dosage: UNK
     Route: 065
     Dates: start: 20210612, end: 20210617
  252. MORPHINE [Concomitant]
     Active Substance: MORPHINE
     Indication: Dyspnoea
     Dosage: UNK
     Route: 065
     Dates: start: 20210521, end: 20210616
  253. MORPHINE [Concomitant]
     Active Substance: MORPHINE
     Indication: Dyspnoea
     Dosage: UNK
     Route: 065
     Dates: start: 20210616, end: 20210623
  254. MORPHINE [Concomitant]
     Active Substance: MORPHINE
     Dosage: UNK  ONGOING = NOT CHECKED
     Route: 065
     Dates: start: 20210521, end: 20210616
  255. MORPHINE [Concomitant]
     Active Substance: MORPHINE
     Dosage: UNK
     Route: 065
     Dates: start: 20210616, end: 20210623
  256. ALPRAZOLAM [Concomitant]
     Active Substance: ALPRAZOLAM
     Indication: Restlessness
     Dosage: UNK
     Route: 065
     Dates: start: 20210613, end: 20210615
  257. ALPRAZOLAM [Concomitant]
     Active Substance: ALPRAZOLAM
     Dosage: UNK
     Route: 065
  258. ALPRAZOLAM [Concomitant]
     Active Substance: ALPRAZOLAM
     Dosage: UNK
     Route: 065
  259. ALPRAZOLAM [Concomitant]
     Active Substance: ALPRAZOLAM
     Dosage: UNK
     Route: 065
  260. ALPRAZOLAM [Concomitant]
     Active Substance: ALPRAZOLAM
     Dosage: UNK
     Route: 065
  261. ALPRAZOLAM [Concomitant]
     Active Substance: ALPRAZOLAM
     Dosage: UNK
     Route: 065
  262. BUTYLSCOPOLAMINE BROMIDE [Concomitant]
     Active Substance: BUTYLSCOPOLAMINE BROMIDE
     Indication: Gastrointestinal disorder
     Dosage: UNK
     Route: 065
  263. BUTYLSCOPOLAMINE BROMIDE [Concomitant]
     Active Substance: BUTYLSCOPOLAMINE BROMIDE
     Dosage: ONGOING = NOT CHECKED
     Route: 065
     Dates: start: 20210618, end: 20210618
  264. BUTYLSCOPOLAMINE BROMIDE [Concomitant]
     Active Substance: BUTYLSCOPOLAMINE BROMIDE
     Dosage: UNK
     Route: 065
  265. LORAZEPAM [Concomitant]
     Active Substance: LORAZEPAM
     Indication: Restlessness
     Dosage: UNK
     Route: 065
     Dates: start: 20210618, end: 20210623
  266. LORAZEPAM [Concomitant]
     Active Substance: LORAZEPAM
     Dosage: UNK
     Route: 065
  267. LORAZEPAM [Concomitant]
     Active Substance: LORAZEPAM
     Dosage: UNK
     Route: 065
  268. LORAZEPAM [Concomitant]
     Active Substance: LORAZEPAM
     Dosage: UNK
     Route: 065
  269. LORAZEPAM [Concomitant]
     Active Substance: LORAZEPAM
     Dosage: UNK
     Route: 065
  270. LORAZEPAM [Concomitant]
     Active Substance: LORAZEPAM
     Dosage: UNK
     Route: 065
  271. LORAZEPAM [Concomitant]
     Active Substance: LORAZEPAM
     Dosage: UNK
     Route: 065
  272. LORAZEPAM [Concomitant]
     Active Substance: LORAZEPAM
     Dosage: UNK
     Route: 065
  273. Temesta [Concomitant]
     Indication: Restlessness
     Dosage: UNK
     Route: 065
     Dates: start: 20210611, end: 20210621
  274. Temesta [Concomitant]
     Indication: Product used for unknown indication
     Dosage: UNK
     Route: 065
     Dates: start: 20210618, end: 20210623
  275. Diproderm [Concomitant]
     Indication: Eczema
     Dosage: UNK, BID (0.5 DAY)
     Route: 001
     Dates: start: 20191122, end: 20191215
  276. Diproderm [Concomitant]
     Indication: Eczema
  277. PANTOPRAZOLE [Concomitant]
     Active Substance: PANTOPRAZOLE
     Indication: Gastrointestinal disorder
     Dosage: UNK
     Route: 065
     Dates: start: 20210317, end: 20210623
  278. PANTOPRAZOLE [Concomitant]
     Active Substance: PANTOPRAZOLE
     Dosage: UNK
     Route: 065
     Dates: start: 20210618, end: 20210623
  279. PANTOPRAZOLE [Concomitant]
     Active Substance: PANTOPRAZOLE
     Dosage: UNK
     Route: 065
     Dates: start: 20210317, end: 20210607
  280. PANTOPRAZOLE [Concomitant]
     Active Substance: PANTOPRAZOLE
     Dosage: UNK
     Route: 065
     Dates: start: 20210618, end: 20210623
  281. PANTOPRAZOLE [Concomitant]
     Active Substance: PANTOPRAZOLE
     Dosage: UNK
     Route: 065
     Dates: start: 20210608, end: 20210610
  282. PANTOPRAZOLE [Concomitant]
     Active Substance: PANTOPRAZOLE
     Dosage: UNK
     Route: 065
     Dates: start: 20210608, end: 20210610
  283. PANTOPRAZOLE [Concomitant]
     Active Substance: PANTOPRAZOLE
     Dosage: UNK
     Route: 065
     Dates: start: 20210317, end: 20210607
  284. PANTOPRAZOLE [Concomitant]
     Active Substance: PANTOPRAZOLE
     Dosage: UNK
     Route: 065
     Dates: start: 20210618, end: 20210623
  285. PANTOPRAZOLE [Concomitant]
     Active Substance: PANTOPRAZOLE
     Dosage: 40 MG, QD
     Route: 065
     Dates: start: 20170721
  286. PANTOPRAZOLE [Concomitant]
     Active Substance: PANTOPRAZOLE
     Dosage: UNK UNK, QD
     Route: 065
     Dates: start: 20170722, end: 20180327
  287. PANTOPRAZOLE [Concomitant]
     Active Substance: PANTOPRAZOLE
     Dosage: UNK, QD
     Route: 065
     Dates: start: 20200506, end: 20200519
  288. PANTOPRAZOLE [Concomitant]
     Active Substance: PANTOPRAZOLE
     Dosage: UNK, QD
     Route: 065
     Dates: start: 20210317, end: 20210607
  289. CARBOXYMETHYLCELLULOSE SODIUM [Concomitant]
     Active Substance: CARBOXYMETHYLCELLULOSE SODIUM
     Indication: Product used for unknown indication
     Dosage: UNK
     Route: 065
  290. CARBOXYMETHYLCELLULOSE SODIUM [Concomitant]
     Active Substance: CARBOXYMETHYLCELLULOSE SODIUM
     Dosage: UNK
     Route: 065
  291. CARBOXYMETHYLCELLULOSE SODIUM [Concomitant]
     Active Substance: CARBOXYMETHYLCELLULOSE SODIUM
     Dosage: UNK
     Route: 065
  292. CARBOXYMETHYLCELLULOSE SODIUM [Concomitant]
     Active Substance: CARBOXYMETHYLCELLULOSE SODIUM
     Dosage: UNK
     Route: 065
  293. CARBOXYMETHYLCELLULOSE SODIUM [Concomitant]
     Active Substance: CARBOXYMETHYLCELLULOSE SODIUM
     Dosage: UNK
     Route: 065
  294. CARBOXYMETHYLCELLULOSE SODIUM [Concomitant]
     Active Substance: CARBOXYMETHYLCELLULOSE SODIUM
     Dosage: UNK
     Route: 065
  295. CARBOXYMETHYLCELLULOSE SODIUM [Concomitant]
     Active Substance: CARBOXYMETHYLCELLULOSE SODIUM
     Dosage: UNK
     Route: 065
  296. CARBOXYMETHYLCELLULOSE SODIUM [Concomitant]
     Active Substance: CARBOXYMETHYLCELLULOSE SODIUM
     Dosage: UNK
     Route: 065
  297. CARBOXYMETHYLCELLULOSE SODIUM [Concomitant]
     Active Substance: CARBOXYMETHYLCELLULOSE SODIUM
     Dosage: UNK
     Route: 065
     Dates: start: 20210105, end: 20210413
  298. CARBOXYMETHYLCELLULOSE SODIUM [Concomitant]
     Active Substance: CARBOXYMETHYLCELLULOSE SODIUM
     Dosage: UNK
     Route: 065
  299. CARBOXYMETHYLCELLULOSE SODIUM [Concomitant]
     Active Substance: CARBOXYMETHYLCELLULOSE SODIUM
     Dosage: UNK
     Route: 065
  300. CARBOXYMETHYLCELLULOSE SODIUM [Concomitant]
     Active Substance: CARBOXYMETHYLCELLULOSE SODIUM
     Dosage: UNK
     Route: 065
  301. AMOXICILLIN [Concomitant]
     Active Substance: AMOXICILLIN
     Indication: Product used for unknown indication
     Dosage: UNK
     Route: 065
  302. AMOXICILLIN [Concomitant]
     Active Substance: AMOXICILLIN
     Dosage: UNK
     Route: 065
  303. Elomel [Concomitant]
     Indication: Product used for unknown indication
     Dosage: UNK
     Route: 065
  304. Elomel [Concomitant]
     Dosage: UNK
     Route: 065
  305. Elomel [Concomitant]
     Dosage: UNK
     Route: 065
  306. Elomel [Concomitant]
     Dosage: UNK
     Route: 065
  307. SALINE [Concomitant]
     Active Substance: SODIUM CHLORIDE
     Indication: Product used for unknown indication
     Route: 065
  308. SALINE [Concomitant]
     Active Substance: SODIUM CHLORIDE
     Dosage: UNK
     Route: 065
  309. SALINE [Concomitant]
     Active Substance: SODIUM CHLORIDE
     Dosage: UNK
     Route: 065
  310. Metogastron [Concomitant]
     Indication: Product used for unknown indication
     Dosage: UNK
     Route: 065
     Dates: start: 20200506
  311. MARINOL [Concomitant]
     Active Substance: DRONABINOL
     Indication: Gastrointestinal disorder
     Dosage: UNK
     Route: 065
     Dates: start: 20210608, end: 20210612
  312. Dexagenta [Concomitant]
     Indication: Brain oedema
     Dosage: 40 MG
     Route: 065
     Dates: start: 20171004, end: 20171006
  313. Dexagenta [Concomitant]
     Dosage: UNK
     Route: 065
     Dates: start: 20171007, end: 20171008
  314. Morapid [Concomitant]
     Indication: Dyspnoea
     Dosage: UNK
     Route: 065
     Dates: start: 20210616, end: 20210623
  315. Morapid [Concomitant]
     Dosage: UNK
     Route: 065
     Dates: start: 20210521, end: 20210616
  316. AMPHO-MORONAL [Concomitant]
     Active Substance: AMPHOTERICIN B
     Indication: Product used for unknown indication
     Dosage: UNK
     Route: 065
  317. AMPHO-MORONAL [Concomitant]
     Active Substance: AMPHOTERICIN B
     Dosage: UNK
     Route: 065
  318. AMPHO-MORONAL [Concomitant]
     Active Substance: AMPHOTERICIN B
     Dosage: UNK
     Route: 065
  319. Healonid [Concomitant]
     Indication: Product used for unknown indication
     Dosage: UNK
     Route: 065
  320. ONDANSETRON HYDROCHLORIDE [Concomitant]
     Active Substance: ONDANSETRON HYDROCHLORIDE
     Indication: Gastrointestinal disorder
     Dosage: UNK
     Route: 065
     Dates: start: 20210611, end: 20210616
  321. ONDANSETRON HYDROCHLORIDE [Concomitant]
     Active Substance: ONDANSETRON HYDROCHLORIDE
     Dosage: UNK
     Route: 048
     Dates: start: 20200506
  322. ONDANSETRON HYDROCHLORIDE [Concomitant]
     Active Substance: ONDANSETRON HYDROCHLORIDE
     Dosage: 8 MG (8 MILLIGRAM ONDANSAN)
     Route: 048
     Dates: start: 20170329, end: 20170809
  323. AMOXICILLIN\CLAVULANATE POTASSIUM [Concomitant]
     Active Substance: AMOXICILLIN\CLAVULANATE POTASSIUM
     Indication: Product used for unknown indication
     Dosage: 1 G
     Route: 065
     Dates: start: 20170711, end: 20170713
  324. AMOXICILLIN\CLAVULANATE POTASSIUM [Concomitant]
     Active Substance: AMOXICILLIN\CLAVULANATE POTASSIUM
     Dosage: UNK
     Route: 065
     Dates: start: 20200604, end: 20200605
  325. FILGRASTIM [Concomitant]
     Active Substance: FILGRASTIM
     Indication: Product used for unknown indication
     Dosage: UNK
     Route: 065
     Dates: start: 20170704, end: 20170708
  326. FILGRASTIM [Concomitant]
     Active Substance: FILGRASTIM
     Indication: Product used for unknown indication
     Dosage: UNK
     Route: 065
     Dates: start: 20200701
  327. FILGRASTIM [Concomitant]
     Active Substance: FILGRASTIM
     Dosage: UNK
     Route: 065
     Dates: start: 20170704, end: 20170708
  328. LIDOCAINE [Concomitant]
     Active Substance: LIDOCAINE
     Indication: Product used for unknown indication
     Dosage: UNK
     Route: 065
     Dates: start: 20200610, end: 20200610
  329. LIDOCAINE [Concomitant]
     Active Substance: LIDOCAINE
     Dosage: UNK
     Route: 065
  330. LIDOCAINE [Concomitant]
     Active Substance: LIDOCAINE
     Dosage: UNK
     Route: 065
  331. LIDOCAINE [Concomitant]
     Active Substance: LIDOCAINE
     Dosage: UNK
     Route: 065
  332. LIDOCAINE [Concomitant]
     Active Substance: LIDOCAINE
     Dosage: UNK
     Route: 065
  333. LIDOCAINE [Concomitant]
     Active Substance: LIDOCAINE
     Dosage: UNK
     Route: 065
  334. LIDOCAINE [Concomitant]
     Active Substance: LIDOCAINE
     Dosage: UNK
     Route: 065
  335. LIDOCAINE [Concomitant]
     Active Substance: LIDOCAINE
     Dosage: UNK
     Route: 065
  336. LIDOCAINE [Concomitant]
     Active Substance: LIDOCAINE
     Dosage: UNK
     Route: 065
  337. LIDOCAINE [Concomitant]
     Active Substance: LIDOCAINE
     Dosage: UNK
     Route: 065
  338. LIDOCAINE [Concomitant]
     Active Substance: LIDOCAINE
     Dosage: UNK
     Route: 065
  339. LIDOCAINE [Concomitant]
     Active Substance: LIDOCAINE
     Dosage: UNK
     Route: 065
  340. Cal c vita [Concomitant]
     Indication: Product used for unknown indication
     Dosage: ONGOING = NOT CHECKED
     Route: 065
     Dates: start: 20170203, end: 20210612
  341. Calcium genericon [Concomitant]
     Indication: Product used for unknown indication
     Dosage: UNK
     Route: 065
     Dates: start: 20170203
  342. POTASSIUM CHLORIDE [Concomitant]
     Active Substance: POTASSIUM CHLORIDE
     Indication: Product used for unknown indication
     Dosage: UNK
     Route: 065
  343. LYRICA [Concomitant]
     Active Substance: PREGABALIN
     Indication: Product used for unknown indication
     Dosage: 25 MG, QD
     Route: 065
     Dates: start: 20170428, end: 20180123
  344. LYRICA [Concomitant]
     Active Substance: PREGABALIN
     Dosage: 6775 MG
     Route: 065
     Dates: start: 20190821, end: 20210616
  345. AUGMENTIN [Concomitant]
     Active Substance: AMOXICILLIN\CLAVULANATE POTASSIUM
     Indication: Product used for unknown indication
     Dosage: UNK
     Route: 065
     Dates: start: 20170710, end: 20170710
  346. AUGMENTIN [Concomitant]
     Active Substance: AMOXICILLIN\CLAVULANATE POTASSIUM
     Indication: Product used for unknown indication
     Dosage: UNK
     Route: 065
  347. AUGMENTIN [Concomitant]
     Active Substance: AMOXICILLIN\CLAVULANATE POTASSIUM
     Dosage: UNK
     Route: 065
  348. AUGMENTIN [Concomitant]
     Active Substance: AMOXICILLIN\CLAVULANATE POTASSIUM
     Dosage: UNK
     Route: 065
  349. AUGMENTIN [Concomitant]
     Active Substance: AMOXICILLIN\CLAVULANATE POTASSIUM
     Dosage: UNK
     Route: 065
  350. AUGMENTIN [Concomitant]
     Active Substance: AMOXICILLIN\CLAVULANATE POTASSIUM
     Dosage: UNK
     Route: 065
  351. AUGMENTIN [Concomitant]
     Active Substance: AMOXICILLIN\CLAVULANATE POTASSIUM
     Dosage: UNK
     Route: 065
  352. AUGMENTIN [Concomitant]
     Active Substance: AMOXICILLIN\CLAVULANATE POTASSIUM
     Dosage: UNK
     Route: 065
  353. AUGMENTIN [Concomitant]
     Active Substance: AMOXICILLIN\CLAVULANATE POTASSIUM
     Dosage: UNK
     Route: 065
  354. SODIUM CACODYLATE [Concomitant]
     Active Substance: SODIUM CACODYLATE
     Indication: Dyspnoea
     Dosage: UNK
     Route: 065
     Dates: start: 20210616, end: 20210623
  355. SODIUM CACODYLATE [Concomitant]
     Active Substance: SODIUM CACODYLATE
     Indication: Dyspnoea
     Dosage: UNK
     Route: 065
     Dates: start: 20210521, end: 20210616
  356. SODIUM CACODYLATE [Concomitant]
     Active Substance: SODIUM CACODYLATE
     Indication: Dyspnoea
  357. CEFEPIME [Concomitant]
     Active Substance: CEFEPIME HYDROCHLORIDE
     Indication: Product used for unknown indication
     Dosage: UNK
     Route: 065
  358. CEFEPIME [Concomitant]
     Active Substance: CEFEPIME HYDROCHLORIDE
     Indication: Product used for unknown indication
     Dosage: UNK
     Route: 065
  359. CEFEPIME [Concomitant]
     Active Substance: CEFEPIME HYDROCHLORIDE
     Dosage: UNK
     Route: 065
  360. CEFEPIME [Concomitant]
     Active Substance: CEFEPIME HYDROCHLORIDE
     Dosage: UNK
     Route: 065
  361. HALSET [Concomitant]
     Indication: Cough
     Dosage: UNK
     Route: 065
     Dates: start: 20210611, end: 20210615
  362. Actimaris [Concomitant]
     Indication: Product used for unknown indication
     Dosage: UNK
     Route: 065
     Dates: start: 20200108, end: 20200128
  363. CETYLPYRIDINIUM CHLORIDE [Concomitant]
     Active Substance: CETYLPYRIDINIUM CHLORIDE
     Indication: Cough
     Dosage: UNK
     Route: 065
     Dates: start: 20210611, end: 20210615
  364. DROPERIDOL [Concomitant]
     Active Substance: DROPERIDOL
     Indication: Gastrointestinal disorder
     Dosage: UNK
     Route: 065
     Dates: start: 20210618, end: 20210623
  365. POTASSIUM CHLORIDE [Concomitant]
     Active Substance: POTASSIUM CHLORIDE
     Indication: Product used for unknown indication
     Dosage: UNK
     Route: 065
  366. POTASSIUM CHLORIDE [Concomitant]
     Active Substance: POTASSIUM CHLORIDE
     Dosage: UNK
     Route: 065
  367. DROPERIDOL [Concomitant]
     Active Substance: DROPERIDOL
     Indication: Gastrointestinal disorder
     Dosage: UNK
     Route: 065
     Dates: start: 20210612, end: 20210617
  368. OLIVE OIL [Concomitant]
     Active Substance: OLIVE OIL
     Indication: Paronychia
     Dosage: UNK
     Route: 065
     Dates: start: 20191002, end: 20200512
  369. OLIVE OIL [Concomitant]
     Active Substance: OLIVE OIL
     Dosage: UNK
     Route: 065
  370. OLIVE OIL [Concomitant]
     Active Substance: OLIVE OIL
     Dosage: UNK
     Route: 065
  371. Neriforte [Concomitant]
     Indication: Skin fissures
     Dosage: UNK
     Route: 065
     Dates: start: 20200430, end: 20200515
  372. Neriforte [Concomitant]
     Indication: Skin fissures
     Dosage: UNK
     Route: 065
  373. Neriforte [Concomitant]
     Dosage: 1 DOSAGE FORM, {ASNECESSARY} (AS NECESSARY)
     Route: 065
     Dates: start: 20200430, end: 20200515
  374. ONDANSETRON HYDROCHLORIDE [Concomitant]
     Active Substance: ONDANSETRON HYDROCHLORIDE
     Indication: Gastrointestinal disorder
     Dosage: UNK
     Route: 065
     Dates: start: 20200506
  375. BETAISODONA [Concomitant]
     Active Substance: POVIDONE-IODINE
     Indication: Skin fissures
     Dosage: UNK
     Route: 065
     Dates: start: 20200430, end: 20200515
  376. BETAISODONA [Concomitant]
     Active Substance: POVIDONE-IODINE
     Dosage: UNK
     Route: 065
  377. BETAISODONA [Concomitant]
     Active Substance: POVIDONE-IODINE
     Dosage: UNK
     Route: 065
  378. BETAISODONA [Concomitant]
     Active Substance: POVIDONE-IODINE
     Dosage: UNK
     Route: 065
  379. BETAISODONA [Concomitant]
     Active Substance: POVIDONE-IODINE
     Dosage: UNK
     Route: 065

REACTIONS (29)
  - Pseudomonal sepsis [Recovered/Resolved]
  - Streptococcal sepsis [Recovered/Resolved]
  - Sepsis [Recovered/Resolved]
  - Brain oedema [Not Recovered/Not Resolved]
  - Vascular device infection [Recovered/Resolved]
  - Vascular device infection [Recovered/Resolved]
  - Metastases to central nervous system [Not Recovered/Not Resolved]
  - Metastases to lymph nodes [Not Recovered/Not Resolved]
  - Metastases to central nervous system [Not Recovered/Not Resolved]
  - Fatigue [Not Recovered/Not Resolved]
  - C-reactive protein increased [Not Recovered/Not Resolved]
  - Restlessness [Unknown]
  - Nausea [Recovered/Resolved]
  - Vomiting [Recovered/Resolved]
  - Intentional product use issue [Unknown]
  - Varicose vein [Not Recovered/Not Resolved]
  - Back pain [Recovered/Resolved]
  - Pleural effusion [Recovered/Resolved]
  - C-reactive protein increased [Not Recovered/Not Resolved]
  - Skin fissures [Recovered/Resolved]
  - Paronychia [Recovered/Resolved]
  - Eczema [Not Recovered/Not Resolved]
  - Candida infection [Recovered/Resolved]
  - Restlessness [Not Recovered/Not Resolved]
  - Nasal mucosal disorder [Recovered/Resolved]
  - Nail bed inflammation [Not Recovered/Not Resolved]
  - Intentional product use issue [Unknown]
  - Intentional product use issue [Unknown]
  - Off label use [Unknown]

NARRATIVE: CASE EVENT DATE: 20170921
